FAERS Safety Report 5528186-6 (Version None)
Quarter: 2007Q4

REPORT INFORMATION
  Report Type: 
  Country: None (occurrence: None)
  Receive Date: 20071121
  Receipt Date: 20071109
  Transmission Date: 20080405
  Serious: Yes (Death, Hospitalization)
  Sender: FDA-Public Use
  Company Number: 164044ISR

PATIENT
  Age: 55 Year
  Sex: Male

DRUGS (6)
  1. ETOPOSIDE [Suspect]
     Indication: SMALL CELL LUNG CANCER STAGE UNSPECIFIED
     Dosage: CYCLICAL; 120 MG/M2,  INTRAVENOUS
     Route: 042
     Dates: start: 20040901
  2. ETOPOSIDE [Suspect]
     Indication: SMALL CELL LUNG CANCER STAGE UNSPECIFIED
     Dosage: CYCLICAL; 120 MG/M2,  INTRAVENOUS
     Route: 042
     Dates: start: 20041201
  3. CISPLATIN [Suspect]
     Dosage: 60 MG/M2 (CYCLICAL), INTRAVENOUS
     Route: 042
     Dates: start: 20040901
  4. CISPLATIN [Suspect]
     Dosage: 60 MG/M2 (CYCLICAL), INTRAVENOUS
     Route: 042
     Dates: start: 20041201
  5. DEXAMETHASONE TAB [Suspect]
     Indication: OEDEMA
     Dosage: 8 MG, INTRAMUSCULAR
     Route: 030
  6. DEXAMETHASONE TAB [Suspect]
     Indication: PROPHYLAXIS
     Dosage: 8 MG, INTRAMUSCULAR
     Route: 030

REACTIONS (14)
  - ASTHENIA [None]
  - BRAIN OEDEMA [None]
  - CEREBRAL ATROPHY [None]
  - CEREBRAL HAEMORRHAGE [None]
  - COGNITIVE DISORDER [None]
  - COMA [None]
  - CONFUSIONAL STATE [None]
  - ENCEPHALITIS HERPES [None]
  - HYPOGAMMAGLOBULINAEMIA [None]
  - LEUKOCYTOSIS [None]
  - LYMPHOPENIA [None]
  - PYREXIA [None]
  - RED BLOOD CELL SEDIMENTATION RATE INCREASED [None]
  - TREMOR [None]
